FAERS Safety Report 9425320 (Version 2)
Quarter: 2013Q4

REPORT INFORMATION
  Report Type: Spontaneous
  Country: GB (occurrence: GB)
  Receive Date: 20130729
  Receipt Date: 20131028
  Transmission Date: 20140711
  Serious: Yes (Disabling, Other)
  Sender: FDA-Public Use
  Company Number: PHHY2013GB078745

PATIENT
  Age: 80 Year
  Sex: Male
  Weight: 74 kg

DRUGS (4)
  1. ATORVASTATIN [Suspect]
     Indication: BLOOD CHOLESTEROL INCREASED
     Dosage: 10 MG, UNK
     Route: 048
     Dates: start: 201210
  2. OLSALAZINE [Concomitant]
     Indication: COLITIS ULCERATIVE
     Dosage: 250 MG, 5QD
     Route: 048
     Dates: start: 2007
  3. NORMACOL [Concomitant]
     Dosage: 1 DF, BID
  4. PROBIOTICS [Concomitant]

REACTIONS (2)
  - Proctitis [Recovered/Resolved]
  - Condition aggravated [Recovered/Resolved]
